FAERS Safety Report 16600427 (Version 1)
Quarter: 2019Q3

REPORT INFORMATION
  Report Type: Spontaneous
  Country: FR (occurrence: FR)
  Receive Date: 20190720
  Receipt Date: 20190720
  Transmission Date: 20191004
  Serious: Yes (Life-Threatening)
  Sender: FDA-Public Use
  Company Number: FR-TEVA-2019-FR-1078220

PATIENT
  Age: 75 Year
  Sex: Male

DRUGS (15)
  1. BISOPROLOL (FUMARATE ACIDE DE) [Concomitant]
     Active Substance: BISOPROLOL FUMARATE
  2. KARDEGIC [Suspect]
     Active Substance: ASPIRIN DL-LYSINE
     Indication: CORONARY ARTERY BYPASS
     Dosage: 75 MILLIGRAM
     Route: 048
     Dates: start: 20190423, end: 20190527
  3. LANSOPRAZOLE. [Concomitant]
     Active Substance: LANSOPRAZOLE
  4. PERMIXON [Concomitant]
     Active Substance: HERBALS\SAW PALMETTO
  5. ULTIBRO BREEZHALER [Concomitant]
     Active Substance: GLYCOPYRRONIUM\INDACATEROL
  6. AMIODARONE (CHLORHYDRATE D^) [Suspect]
     Active Substance: AMIODARONE HYDROCHLORIDE
     Indication: ARRHYTHMIA
     Dosage: 400 MILLIGRAM
     Route: 048
     Dates: end: 20190606
  7. ATORVASTATINE [Concomitant]
     Active Substance: ATORVASTATIN
  8. SITAGLIPTINE [Concomitant]
     Active Substance: SITAGLIPTIN
  9. CLOPIDOGREL (CHLORHYDRATE DE) [Suspect]
     Active Substance: CLOPIDOGREL HYDROCHLORIDE
     Indication: CORONARY ARTERY BYPASS
     Dosage: 75 MILLIGRAM
     Route: 048
     Dates: start: 20190423
  10. OXAZEPAM. [Concomitant]
     Active Substance: OXAZEPAM
  11. VILDAGLIPTINE [Concomitant]
     Active Substance: VILDAGLIPTIN
  12. FUROSEMIDE. [Concomitant]
     Active Substance: FUROSEMIDE
  13. PREGABALINE [Concomitant]
     Active Substance: PREGABALIN
  14. SALBUTAMOL [Concomitant]
     Active Substance: ALBUTEROL
  15. CANDESARTAN CILEXETIL. [Concomitant]
     Active Substance: CANDESARTAN CILEXETIL

REACTIONS (2)
  - Dyspnoea [Recovered/Resolved]
  - Haemoptysis [Recovered/Resolved]

NARRATIVE: CASE EVENT DATE: 20190526
